FAERS Safety Report 10142759 (Version 3)
Quarter: 2014Q2

REPORT INFORMATION
  Report Type: Spontaneous
  Country: US (occurrence: None)
  Receive Date: 20140425
  Receipt Date: 20140502
  Transmission Date: 20141212
  Serious: Yes (Hospitalization)
  Sender: FDA-Public Use
  Company Number: UTC-047293

PATIENT
  Age: 48 Year
  Sex: Female
  Weight: 55.79 kg

DRUGS (3)
  1. TYVASO [Suspect]
     Indication: PULMONARY ARTERIAL HYPERTENSION
     Route: 055
     Dates: start: 20101028
  2. REVATIO (SILDENAFIL CITRATE) [Concomitant]
  3. WARFARIN (WARFARIN) [Concomitant]

REACTIONS (3)
  - Thrombosis [None]
  - Catheterisation cardiac [None]
  - Fluid retention [None]
